FAERS Safety Report 9918209 (Version 1)
Quarter: 2014Q1

REPORT INFORMATION
  Report Type: Spontaneous
  Country: GB (occurrence: GB)
  Receive Date: 20140223
  Receipt Date: 20140223
  Transmission Date: 20141002
  Serious: Yes (Life-Threatening, Hospitalization)
  Sender: FDA-Public Use
  Company Number: GB-MYLANLABS-2014S1003137

PATIENT
  Age: 60 Year
  Sex: Male

DRUGS (4)
  1. VENLAFAXIN [Suspect]
     Indication: DEPRESSION
     Dosage: 75MG OD FOR ONE WEEK FOLLOWED BY 150MG OD
     Route: 048
     Dates: start: 20140106
  2. VENLAFAXIN [Suspect]
     Indication: DEPRESSION
     Dosage: 75MG OD FOR ONE WEEK FOLLOWED BY 150MG OD
     Route: 048
     Dates: end: 20140121
  3. PRAMIPEXOL [Concomitant]
  4. OLANZAPINE [Concomitant]

REACTIONS (6)
  - Hyponatraemia [Recovering/Resolving]
  - Status epilepticus [Unknown]
  - Postictal paralysis [Unknown]
  - Rhabdomyolysis [Unknown]
  - Blood creatine phosphokinase increased [Unknown]
  - Troponin increased [Unknown]
